FAERS Safety Report 7228150-5 (Version None)
Quarter: 2011Q1

REPORT INFORMATION
  Report Type: 
  Country: None (occurrence: None)
  Receive Date: 20110114
  Receipt Date: 20110107
  Transmission Date: 20110831
  Serious: Yes (Disabling)
  Sender: FDA-Public Use
  Company Number: FR-KINGPHARMUSA00001-K201100030

PATIENT
  Age: 68 Year
  Sex: Female

DRUGS (5)
  1. DIGOXIN [Concomitant]
  2. ATORVASTATIN CALCIUM [Concomitant]
  3. WARFARIN [Concomitant]
  4. ALTACE [Suspect]
     Indication: CORONARY ARTERY DISEASE
     Dosage: 10 MG, QD
     Route: 048
     Dates: start: 20070101
  5. BICOR [Concomitant]

REACTIONS (1)
  - BALANCE DISORDER [None]
